FAERS Safety Report 8808762 (Version 1)
Quarter: 2012Q4

REPORT INFORMATION
  Report Type: Spontaneous
  Country: US (occurrence: None)
  Receive Date: 20120921
  Receipt Date: 20120921
  Transmission Date: 20130627
  Serious: Yes (Other)
  Sender: FDA-Public Use
  Company Number: None

PATIENT
  Age: 64 Year
  Sex: Male
  Weight: 99.79 kg

DRUGS (1)
  1. ALFUZOSIN [Suspect]
     Indication: BPH
     Route: 048
     Dates: start: 201208, end: 201209

REACTIONS (2)
  - Drug ineffective [None]
  - Product substitution issue [None]
